FAERS Safety Report 6238838-0 (Version None)
Quarter: 2009Q2

REPORT INFORMATION
  Report Type: 
  Country: None (occurrence: None)
  Receive Date: 20090622
  Receipt Date: 20090610
  Transmission Date: 20091009
  Serious: Yes (Hospitalization, Other)
  Sender: FDA-Public Use
  Company Number: GB-PFIZER INC-2009225919

PATIENT
  Age: 2 Year

DRUGS (1)
  1. GLIBENCLAMIDE [Suspect]

REACTIONS (3)
  - DRUG PRESCRIBING ERROR [None]
  - HYPOGLYCAEMIA [None]
  - INTENTIONAL DRUG MISUSE [None]
